FAERS Safety Report 8107023-X (Version None)
Quarter: 2012Q1

REPORT INFORMATION
  Report Type: 
  Country: None (occurrence: None)
  Receive Date: 20120202
  Receipt Date: 20120202
  Transmission Date: 20120608
  Serious: Yes (Disabling)
  Sender: FDA-Public Use
  Company Number: None

PATIENT
  Age: 28 Year
  Sex: Female
  Weight: 65.77 kg

DRUGS (1)
  1. MIRENA [Suspect]

REACTIONS (10)
  - ALOPECIA [None]
  - DEPRESSION [None]
  - LOSS OF LIBIDO [None]
  - VAGINAL ODOUR [None]
  - PRURITUS [None]
  - NERVOUSNESS [None]
  - MOOD SWINGS [None]
  - ANXIETY [None]
  - DISTURBANCE IN ATTENTION [None]
  - VAGINAL DISCHARGE [None]
